FAERS Safety Report 5547303-5 (Version None)
Quarter: 2007Q4

REPORT INFORMATION
  Report Type: 
  Country: None (occurrence: None)
  Receive Date: 20071211
  Receipt Date: 20070220
  Transmission Date: 20080405
  Serious: No
  Sender: FDA-Public Use
  Company Number: US-AMGEN-KDL212068

PATIENT
  Sex: Male

DRUGS (2)
  1. ENBREL [Suspect]
     Indication: RHEUMATOID ARTHRITIS
     Route: 058
     Dates: start: 19990301
  2. METHOTREXATE [Concomitant]
     Route: 048
     Dates: start: 19990101

REACTIONS (5)
  - CONTUSION [None]
  - INJURY [None]
  - OPEN WOUND [None]
  - SWELLING [None]
  - WOUND SECRETION [None]
